FAERS Safety Report 23810010 (Version 1)
Quarter: 2024Q2

REPORT INFORMATION
  Report Type: Spontaneous
  Country: US (occurrence: US)
  Receive Date: 20240502
  Receipt Date: 20240502
  Transmission Date: 20240716
  Serious: Yes (Other)
  Sender: FDA-Public Use
  Company Number: US-BAXTER-2024BAX017520

PATIENT
  Age: 63 Year
  Sex: Male

DRUGS (2)
  1. FUROSEMIDE [Suspect]
     Active Substance: FUROSEMIDE
     Indication: Diuretic therapy
     Route: 065
  2. SPIRONOLACTONE [Suspect]
     Active Substance: SPIRONOLACTONE
     Indication: Diuretic therapy
     Route: 065

REACTIONS (1)
  - Hyperkalaemia [Unknown]
